FAERS Safety Report 9660613 (Version 1)
Quarter: 2013Q4

REPORT INFORMATION
  Report Type: Spontaneous
  Country: US (occurrence: US)
  Receive Date: 20131031
  Receipt Date: 20131031
  Transmission Date: 20140711
  Serious: Yes (Hospitalization)
  Sender: FDA-Public Use
  Company Number: US-B.I. PHARMACEUTICALS,INC./RIDGEFIELD-2013-BI-34608BP

PATIENT
  Sex: Male
  Weight: 60 kg

DRUGS (7)
  1. SPIRIVA [Suspect]
     Indication: EMPHYSEMA
     Dosage: 18 MCG
     Route: 055
     Dates: start: 2004
  2. HYDROCORTIZONE [Concomitant]
     Indication: BACK PAIN
     Dosage: STRENGTH: 7.5/500;
  3. HYDROCORTIZONE [Concomitant]
     Indication: SPINAL COLUMN INJURY
  4. ALBUTEROL [Concomitant]
     Indication: INHALATION THERAPY
  5. AMLODIPINE [Concomitant]
     Indication: HYPERTENSION
     Dosage: 5 MG
     Route: 048
  6. BUDESONIDE [Concomitant]
     Indication: INHALATION THERAPY
  7. OXYGEN DEPENDANT 3 LITERS CONTINUOUSLY [Concomitant]

REACTIONS (4)
  - Pneumonia [Recovered/Resolved]
  - Pyrexia [Recovered/Resolved]
  - Muscle strain [Not Recovered/Not Resolved]
  - Abnormal loss of weight [Not Recovered/Not Resolved]
